FAERS Safety Report 7389265-4 (Version None)
Quarter: 2011Q2

REPORT INFORMATION
  Report Type: 
  Country: None (occurrence: None)
  Receive Date: 20110401
  Receipt Date: 20110325
  Transmission Date: 20111010
  Serious: Yes (Other)
  Sender: FDA-Public Use
  Company Number: JP-BAYER-2011-026043

PATIENT
  Age: 63 Year
  Sex: Male

DRUGS (2)
  1. ACETYLSALICYLIC ACID SRT [Suspect]
     Indication: MITRAL VALVE INCOMPETENCE
     Dosage: 100 MG, QD
  2. ACETYLSALICYLIC ACID SRT [Suspect]
     Indication: ANGINA PECTORIS

REACTIONS (3)
  - MELAENA [None]
  - LARGE INTESTINAL ULCER HAEMORRHAGE [None]
  - ABDOMINAL PAIN [None]
